FAERS Safety Report 8520554 (Version 2)
Quarter: 2013Q2

REPORT INFORMATION
  Report Type: Spontaneous
  Country: US (occurrence: US)
  Receive Date: 20120418
  Receipt Date: 20130423
  Transmission Date: 20140414
  Serious: No
  Sender: FDA-Public Use
  Company Number: US-PFIZER INC-2012094210

PATIENT
  Sex: Female

DRUGS (3)
  1. NEURONTIN [Suspect]
     Indication: NEURALGIA
     Dosage: 600 MG, UNK
     Route: 048
  2. NEURONTIN [Suspect]
     Indication: NEURALGIA
     Dosage: 300 MG, UNK
     Route: 048
     Dates: start: 2011
  3. NEURONTIN [Suspect]
     Dosage: 600 MG, UNK

REACTIONS (1)
  - Pain in extremity [Unknown]
